FAERS Safety Report 13897369 (Version 1)
Quarter: 2017Q3

REPORT INFORMATION
  Report Type: Spontaneous
  Country: US (occurrence: US)
  Receive Date: 20170823
  Receipt Date: 20170823
  Transmission Date: 20171127
  Serious: No
  Sender: FDA-Public Use
  Company Number: US-MYLANLABS-2017M1020566

PATIENT
  Sex: Male

DRUGS (1)
  1. NITROFURANTOIN (MACROCRYSTALS) CAPSULES, USP [Suspect]
     Active Substance: NITROFURANTOIN
     Indication: PRODUCT USED FOR UNKNOWN INDICATION
     Dosage: UNK

REACTIONS (1)
  - Malaise [Not Recovered/Not Resolved]
